FAERS Safety Report 6493660-5 (Version None)
Quarter: 2009Q4

REPORT INFORMATION
  Report Type: 
  Country: None (occurrence: None)
  Receive Date: 20091214
  Receipt Date: 20091204
  Transmission Date: 20100525
  Serious: Yes (Other)
  Sender: FDA-Public Use
  Company Number: B0601125A

PATIENT
  Age: 74 Year
  Sex: Female

DRUGS (2)
  1. ROSIGLITAZONE [Suspect]
     Indication: TYPE 2 DIABETES MELLITUS
     Dosage: 4MG PER DAY
     Route: 065
  2. GLICLAZIDE [Concomitant]
     Dosage: 90MG PER DAY

REACTIONS (9)
  - CARDIAC FAILURE [None]
  - DYSPNOEA EXERTIONAL [None]
  - HEART RATE INCREASED [None]
  - OEDEMA PERIPHERAL [None]
  - PULMONARY OEDEMA [None]
  - RALES [None]
  - SLEEP APNOEA SYNDROME [None]
  - VASODILATATION [None]
  - WEIGHT INCREASED [None]
